FAERS Safety Report 5572191-0 (Version None)
Quarter: 2007Q4

REPORT INFORMATION
  Report Type: 
  Country: None (occurrence: None)
  Receive Date: 20071221
  Receipt Date: 20071218
  Transmission Date: 20080405
  Serious: Yes (Hospitalization, Disabling)
  Sender: FDA-Public Use
  Company Number: US-MERCK-0706USA00847

PATIENT
  Age: 54 Year
  Sex: Female

DRUGS (3)
  1. FOSAMAX [Suspect]
     Indication: OSTEOPOROSIS
     Route: 048
     Dates: start: 20000517, end: 20010201
  2. FOSAMAX [Suspect]
     Route: 048
     Dates: start: 20010401, end: 20060404
  3. PREMARIN [Concomitant]
     Route: 065
     Dates: end: 20050101

REACTIONS (5)
  - OSTEOGENESIS IMPERFECTA [None]
  - PAIN IN JAW [None]
  - RESORPTION BONE INCREASED [None]
  - TEMPOROMANDIBULAR JOINT SYNDROME [None]
  - UPPER LIMB FRACTURE [None]
